FAERS Safety Report 21526043 (Version 3)
Quarter: 2025Q2

REPORT INFORMATION
  Report Type: Spontaneous
  Country: ES (occurrence: ES)
  Receive Date: 20221031
  Receipt Date: 20250609
  Transmission Date: 20250716
  Serious: Yes (Hospitalization, Other)
  Sender: AUROBINDO
  Company Number: ES-Almus S.r.l.-ES-NIC-22-00236

PATIENT
  Age: 63 Year
  Sex: Male

DRUGS (4)
  1. SILDENAFIL [Suspect]
     Active Substance: SILDENAFIL
     Indication: Erectile dysfunction
     Route: 065
  2. SILDENAFIL [Suspect]
     Active Substance: SILDENAFIL
     Route: 065
  3. SILDENAFIL [Suspect]
     Active Substance: SILDENAFIL
     Route: 065
  4. SILDENAFIL [Suspect]
     Active Substance: SILDENAFIL
     Route: 065

REACTIONS (4)
  - Suspected counterfeit product [Unknown]
  - Hepatitis toxic [Unknown]
  - Hepatitis cholestatic [Unknown]
  - Drug-induced liver injury [Recovered/Resolved]
